FAERS Safety Report 7305182-X (Version None)
Quarter: 2011Q1

REPORT INFORMATION
  Report Type: 
  Country: None (occurrence: None)
  Receive Date: 20110222
  Receipt Date: 20110207
  Transmission Date: 20110831
  Serious: Yes (Hospitalization)
  Sender: FDA-Public Use
  Company Number: US-SANOFI-AVENTIS-2011SA006422

PATIENT
  Age: 60 Year
  Sex: Male

DRUGS (9)
  1. MULTAQ [Suspect]
     Indication: ATRIAL FIBRILLATION
     Route: 048
     Dates: start: 20100901, end: 20101201
  2. NIASPAN [Concomitant]
  3. LANOXIN [Concomitant]
  4. GEMFIBROZIL [Concomitant]
  5. SYNTHROID [Concomitant]
  6. COUMADIN [Concomitant]
  7. ZETIA [Concomitant]
  8. VALSARTAN [Concomitant]
  9. BENICAR [Concomitant]

REACTIONS (4)
  - CHOLESTATIC LIVER INJURY [None]
  - JAUNDICE [None]
  - BLOOD BILIRUBIN INCREASED [None]
  - BLOOD GLUCOSE INCREASED [None]
